FAERS Safety Report 11023757 (Version 2)
Quarter: 2015Q2

REPORT INFORMATION
  Report Type: Spontaneous
  Country: US (occurrence: US)
  Receive Date: 20150413
  Receipt Date: 20150525
  Transmission Date: 20150821
  Serious: No
  Sender: FDA-Public Use
  Company Number: US-JNJFOC-20140502792

PATIENT
  Age: 46 Year
  Sex: Female
  Weight: 70.31 kg

DRUGS (1)
  1. LEVAQUIN [Suspect]
     Active Substance: LEVOFLOXACIN
     Indication: PNEUMONIA
     Route: 065
     Dates: start: 201403

REACTIONS (3)
  - Diarrhoea [Recovering/Resolving]
  - Gait disturbance [Recovering/Resolving]
  - Pain [Recovering/Resolving]

NARRATIVE: CASE EVENT DATE: 201403
